FAERS Safety Report 11929296 (Version 1)
Quarter: 2016Q1

REPORT INFORMATION
  Report Type: Spontaneous
  Country: FR (occurrence: FR)
  Receive Date: 20160120
  Receipt Date: 20160120
  Transmission Date: 20160526
  Serious: Yes (Hospitalization)
  Sender: FDA-Public Use
  Company Number: FR-ACCORD-037091

PATIENT
  Age: 57 Year
  Sex: Male

DRUGS (6)
  1. CACIT [Concomitant]
     Active Substance: CALCIUM\VITAMIN D
     Route: 048
  2. DOCETAXEL ACCORD [Suspect]
     Active Substance: DOCETAXEL
     Indication: PRODUCT USED FOR UNKNOWN INDICATION
     Dosage: STRENGTH: 160 MG/8ML. ?124 MG ONCE EVERY THREE WEEKS?INTRAVENOUS ROUTE (INFUSION)
     Route: 042
     Dates: start: 20150710, end: 20150821
  3. PARACETAMOL [Concomitant]
     Active Substance: ACETAMINOPHEN
     Route: 048
  4. ONDANSETRON ACCORD [Suspect]
     Active Substance: ONDANSETRON
     Indication: PRODUCT USED FOR UNKNOWN INDICATION
     Dosage: STRENGTH: 2 MG/ML, SOLUTION INJECTABLE.?0.381 MG (8 MG ONCE EVERY 3 WEEKS, IV ROUTE (INFUSION)
     Route: 042
     Dates: start: 20150710, end: 20150821
  5. SOLUPRED [Concomitant]
     Active Substance: PREDNISOLONE
     Dosage: 5 MG ORODISPERSIBLE TABLET
     Route: 048
     Dates: start: 20150625
  6. PANTOPRAZOLE [Concomitant]
     Active Substance: PANTOPRAZOLE SODIUM
     Route: 048

REACTIONS (3)
  - Circulatory collapse [Recovered/Resolved]
  - Febrile neutropenia [Recovered/Resolved]
  - Colitis [Recovered/Resolved]

NARRATIVE: CASE EVENT DATE: 20150825
